FAERS Safety Report 9319773 (Version 1)
Quarter: 2013Q2

REPORT INFORMATION
  Report Type: Spontaneous
  Country: US (occurrence: US)
  Receive Date: 20130530
  Receipt Date: 20130530
  Transmission Date: 20140414
  Serious: Yes (Death, Other)
  Sender: FDA-Public Use
  Company Number: US-009507513-1201USA02692

PATIENT
  Sex: Female

DRUGS (1)
  1. MK-0966 [Suspect]
     Indication: PAIN
     Route: 048

REACTIONS (1)
  - Myocardial infarction [Fatal]
